FAERS Safety Report 20738522 (Version 1)
Quarter: 2022Q2

REPORT INFORMATION
  Report Type: Spontaneous
  Country: US (occurrence: None)
  Receive Date: 20220421
  Receipt Date: 20220421
  Transmission Date: 20220721
  Serious: Yes (Hospitalization)
  Sender: FDA-Public Use
  Company Number: None

PATIENT
  Age: 70 Year
  Sex: Female
  Weight: 69.85 kg

DRUGS (13)
  1. IBRANCE [Suspect]
     Active Substance: PALBOCICLIB
     Indication: Breast cancer female
     Dosage: OTHER FREQUENCY : DAILYX21DAYS;?
     Route: 048
  2. EXEMESTANE [Concomitant]
  3. LETROZOLE [Concomitant]
  4. NYSTATIN [Concomitant]
  5. ZOFRAN 8 [Concomitant]
  6. ALLOPURINOL [Concomitant]
  7. AMLODIPINE [Concomitant]
  8. ATORVASTATIN [Concomitant]
  9. BISOPROLOL-HYDROCHLOROTHIAZIDE [Concomitant]
  10. FLUTICASONE PROPIONATE [Concomitant]
  11. KLOR-CON 10 MEQ [Concomitant]
  12. LISINOPRIL [Concomitant]
     Active Substance: LISINOPRIL
  13. METFORMIN [Concomitant]
     Active Substance: METFORMIN HYDROCHLORIDE

REACTIONS (1)
  - Pneumonia [None]
